FAERS Safety Report 4716915-0 (Version None)
Quarter: 2005Q3

REPORT INFORMATION
  Report Type: 
  Country: None (occurrence: None)
  Receive Date: 20050714
  Receipt Date: 20050630
  Transmission Date: 20060218
  Serious: Yes (Hospitalization)
  Sender: FDA-Public Use
  Company Number: 2005-BP-11035RO

PATIENT
  Age: 42 Year
  Sex: Male

DRUGS (2)
  1. METHADONE HCL [Suspect]
     Indication: DRUG DEPENDENCE
     Dosage: 450 MG/DAY (NR), NR
  2. FLUVOXAMINE MALEATE [Concomitant]

REACTIONS (8)
  - ELECTROCARDIOGRAM QT PROLONGED [None]
  - FACE INJURY [None]
  - FALL [None]
  - HEART RATE DECREASED [None]
  - LOSS OF CONSCIOUSNESS [None]
  - SYNCOPE [None]
  - TONIC CLONIC MOVEMENTS [None]
  - TORSADE DE POINTES [None]
